FAERS Safety Report 9587287 (Version 1)
Quarter: 2013Q4

REPORT INFORMATION
  Report Type: Spontaneous
  Country: PL (occurrence: PL)
  Receive Date: 20131003
  Receipt Date: 20131003
  Transmission Date: 20140711
  Serious: Yes (Other)
  Sender: FDA-Public Use
  Company Number: PHHY2013PL107373

PATIENT
  Age: 34 Year
  Sex: Male

DRUGS (5)
  1. CICLOSPORIN [Suspect]
     Indication: PROPHYLAXIS AGAINST GRAFT VERSUS HOST DISEASE
  2. METHOTREXATE [Suspect]
     Indication: PROPHYLAXIS AGAINST GRAFT VERSUS HOST DISEASE
  3. TREOSULFAN [Concomitant]
     Dosage: 81000 MG, TOTAL
  4. FLUDARABINE [Concomitant]
     Dosage: 250 MG, TOTAL
  5. ATG RABBIT [Concomitant]
     Dosage: 1100 MG, TOTAL

REACTIONS (6)
  - Aplasia pure red cell [Recovered/Resolved]
  - Post transplant lymphoproliferative disorder [Recovered/Resolved]
  - Asthenia [Recovered/Resolved]
  - Reticulocyte count decreased [Recovered/Resolved]
  - Pyrexia [Recovered/Resolved]
  - Lymphadenopathy [Recovered/Resolved]
